FAERS Safety Report 23638970 (Version 1)
Quarter: 2024Q1

REPORT INFORMATION
  Report Type: Spontaneous
  Country: US (occurrence: US)
  Receive Date: 20240315
  Receipt Date: 20240315
  Transmission Date: 20240409
  Serious: No
  Sender: FDA-Public Use
  Company Number: US-GALDERMA-US2024002969

PATIENT

DRUGS (9)
  1. PROACTIV MD ADAPALENE ACNE TREATMENT [Suspect]
     Active Substance: ADAPALENE
     Indication: Acne
     Dosage: 1 DOSAGE FORM, BIW
     Route: 061
     Dates: start: 202312, end: 202401
  2. PROACTIV MD ADAPALENE ACNE TREATMENT [Suspect]
     Active Substance: ADAPALENE
     Indication: Dry skin
  3. Proactiv MD Ultra Gentle Cleanser [Concomitant]
     Indication: Acne
     Dosage: 1 DOSAGE FORM, QWK
     Route: 061
     Dates: start: 202312, end: 202401
  4. Proactiv MD Ultra Gentle Cleanser [Concomitant]
     Indication: Dry skin
  5. Proactiv MD Ultra Hydrating Moisturizer [Concomitant]
     Indication: Acne
     Dosage: 1 DOSAGE FORM, QWK
     Route: 061
     Dates: start: 202312, end: 202401
  6. Proactiv MD Ultra Hydrating Moisturizer [Concomitant]
     Indication: Dry skin
  7. VITAMINS NOS [Concomitant]
     Active Substance: VITAMINS
     Indication: Product used for unknown indication
     Route: 065
  8. MUSHROOM COMPLEX [ALLIUM SATIVUM;GANODERMA LUCIDUM;HERICIUM ERINACEUS; [Concomitant]
     Indication: Product used for unknown indication
     Route: 065
  9. ASHWAGANDHA ROOT [Concomitant]
     Indication: Product used for unknown indication
     Route: 065

REACTIONS (7)
  - Skin burning sensation [Recovered/Resolved]
  - Skin fissures [Recovered/Resolved]
  - Skin irritation [Recovered/Resolved]
  - Dry skin [Recovered/Resolved]
  - Skin exfoliation [Recovered/Resolved]
  - Underdose [Recovered/Resolved]
  - Inappropriate schedule of product administration [Recovered/Resolved]

NARRATIVE: CASE EVENT DATE: 20231201
